FAERS Safety Report 11410697 (Version 1)
Quarter: 2015Q3

REPORT INFORMATION
  Report Type: Spontaneous
  Country: FR (occurrence: FR)
  Receive Date: 20150824
  Receipt Date: 20150824
  Transmission Date: 20151125
  Serious: Yes (Death, Hospitalization)
  Sender: FDA-Public Use
  Company Number: PHHY2015FR098457

PATIENT
  Age: 80 Year
  Sex: Male

DRUGS (1)
  1. AMOXICILLIN+CLAVULANATE SANDOZ [Suspect]
     Active Substance: AMOXICILLIN\CLAVULANATE POTASSIUM
     Indication: PRODUCT USED FOR UNKNOWN INDICATION
     Dosage: UNK
     Route: 041
     Dates: start: 20150719, end: 20150719

REACTIONS (4)
  - Hypersensitivity [Fatal]
  - Anaphylactic reaction [Fatal]
  - Cardio-respiratory arrest [Fatal]
  - Bronchospasm [Fatal]

NARRATIVE: CASE EVENT DATE: 20150719
